FAERS Safety Report 9515583 (Version 1)
Quarter: 2013Q3

REPORT INFORMATION
  Report Type: Not Available
  Country: FR (occurrence: FR)
  Receive Date: 20130911
  Receipt Date: 20130911
  Transmission Date: 20140515
  Serious: Yes (Other)
  Sender: FDA-Public Use
  Company Number: FR-ASTELLAS-2013US009459

PATIENT
  Age: 11 Year
  Sex: Male
  Weight: 35 kg

DRUGS (1)
  1. AMBISOME [Suspect]
     Indication: INFECTION IN AN IMMUNOCOMPROMISED HOST
     Dosage: 120 MG, UNKNOWN/D
     Route: 042
     Dates: start: 20130719

REACTIONS (3)
  - Infusion site extravasation [Recovered/Resolved]
  - Oedema [Recovered/Resolved]
  - Pain [Recovered/Resolved]
